FAERS Safety Report 8990856 (Version 1)
Quarter: 2012Q4

REPORT INFORMATION
  Report Type: Spontaneous
  Country: US (occurrence: None)
  Receive Date: 20121226
  Receipt Date: 20121226
  Transmission Date: 20130627
  Serious: Yes (Life-Threatening, Hospitalization, Other)
  Sender: FDA-Public Use
  Company Number: None

PATIENT
  Age: 58 Year
  Sex: Female
  Weight: 89.81 kg

DRUGS (1)
  1. VICTOZA [Suspect]
     Indication: DIABETES
     Dosage: 1.8 once a day sq
     Route: 058
     Dates: start: 20120526, end: 20121221

REACTIONS (4)
  - Dizziness [None]
  - Nausea [None]
  - Pancreatitis [None]
  - Weight decreased [None]
